FAERS Safety Report 6295325-1 (Version None)
Quarter: 2009Q3

REPORT INFORMATION
  Report Type: 
  Country: None (occurrence: None)
  Receive Date: 20090729
  Receipt Date: 20090717
  Transmission Date: 20100115
  Serious: Yes (Other)
  Sender: FDA-Public Use
  Company Number: GXKR2009JP07361

PATIENT
  Age: 68 Year
  Sex: Female

DRUGS (4)
  1. AMLODIPINE [Suspect]
     Indication: HYPERTENSION
     Dosage: 5 MG/DAY, ORAL
     Route: 048
     Dates: start: 20081029, end: 20090612
  2. VALSARTAN (VALSARTAN) TABLET [Concomitant]
  3. ALFACALCIDOL (ALFACALCIDOL) TABLET [Concomitant]
  4. SIMVASTATIN [Concomitant]

REACTIONS (7)
  - ARRHYTHMIA [None]
  - ATRIOVENTRICULAR BLOCK SECOND DEGREE [None]
  - BLOOD PRESSURE FLUCTUATION [None]
  - BRADYCARDIA [None]
  - CHEST DISCOMFORT [None]
  - EXTRASYSTOLES [None]
  - PALPITATIONS [None]
